FAERS Safety Report 14026348 (Version 1)
Quarter: 2017Q3

REPORT INFORMATION
  Report Type: Spontaneous
  Country: US (occurrence: US)
  Receive Date: 20170929
  Receipt Date: 20170929
  Transmission Date: 20171128
  Serious: Yes (Other)
  Sender: FDA-Public Use
  Company Number: US-AMNEAL PHARMACEUTICALS-2017AMN00898

PATIENT
  Age: 8 Year
  Sex: Female
  Weight: 27.21 kg

DRUGS (1)
  1. LORAZEPAM. [Suspect]
     Active Substance: LORAZEPAM
     Indication: ANXIETY
     Dosage: 2 ML, UNK
     Route: 048

REACTIONS (10)
  - Mydriasis [Recovered/Resolved]
  - Off label use [Recovered/Resolved]
  - Eye movement disorder [Recovered/Resolved]
  - Crying [Recovered/Resolved]
  - Drug intolerance [Recovered/Resolved]
  - Aphasia [Recovered/Resolved]
  - Gait disturbance [Recovered/Resolved]
  - Malaise [Recovered/Resolved]
  - Somnolence [Recovered/Resolved]
  - Vomiting [Recovered/Resolved]

NARRATIVE: CASE EVENT DATE: 201703
